FAERS Safety Report 6244784-9 (Version None)
Quarter: 2009Q2

REPORT INFORMATION
  Report Type: 
  Country: None (occurrence: None)
  Receive Date: 20090625
  Receipt Date: 20090623
  Transmission Date: 20091009
  Serious: Yes (Hospitalization)
  Sender: FDA-Public Use
  Company Number: US-EISAI INC.-E2080-00173-SPO-US

PATIENT
  Sex: Male
  Weight: 40 kg

DRUGS (29)
  1. BANZEL [Suspect]
     Indication: LENNOX-GASTAUT SYNDROME
     Dates: start: 20090420, end: 20090422
  2. BANZEL [Suspect]
     Dates: start: 20090423, end: 20090424
  3. BANZEL [Suspect]
     Dates: start: 20090425, end: 20090426
  4. BANZEL [Suspect]
     Dates: start: 20090427, end: 20090428
  5. BANZEL [Suspect]
     Dates: start: 20090429, end: 20090522
  6. BANZEL [Suspect]
     Dates: start: 20090523
  7. TOPAMAX [Concomitant]
     Dosage: 200/200/150 X 3 PER DAY
  8. KEPPRA [Concomitant]
     Dosage: 100 MG/ML ORAL SOLUTION
  9. DIGOXIN [Concomitant]
     Dosage: 0.5 MG /ML
  10. PREVACID [Concomitant]
  11. SOUCEF MULTIVITAMIN [Concomitant]
  12. SELENIUM [Concomitant]
     Dosage: 40 MCG/ML
  13. CALCIFEROL [Concomitant]
     Dosage: 8000 IU/ML
  14. CULTURELLE [Concomitant]
  15. DIAZEPAM [Concomitant]
     Dosage: RECTALLY AS NEEDED
  16. DIAZEPAM [Concomitant]
     Dosage: 1/2 TAB EVERY 3 HRS AS NEEDED
  17. LORAZEPAM [Concomitant]
     Dosage: 1 TABLET EVERY 8 HRS AS NEEDED
  18. MOTRIN [Concomitant]
     Dosage: 100 MG/5 ML
  19. TYLENOL (CAPLET) [Concomitant]
     Dosage: 160 MG/5ML EVERY 4-6 HRS
  20. ACETAMINOPHEN W/ CODEINE [Concomitant]
     Dosage: 7.5 ML-15 ML VERY 6 HRS
  21. OXYCODONE HCL [Concomitant]
     Dosage: 5 MG/ML EVERY 4 HRS AS NEEDED
  22. MAALOX [Concomitant]
     Dosage: AS NEEDED
  23. ZANTAC [Concomitant]
     Dosage: 15 MG/ML AS NEEDED
  24. ONDANSETRON [Concomitant]
     Dosage: AS NEEDED
  25. CICLOPIROX [Concomitant]
     Dosage: TOPICAL AS NEEDED
  26. NYSTATIN + TRIAMCINOLONE ACETONIDE CREAM [Concomitant]
     Dosage: TOPICAL AS NEEDED
  27. CLARITIN [Concomitant]
     Dosage: 5 MG/5 ML 5-10 ML/DAY AS NEEDED
  28. EPIPEN [Concomitant]
     Dosage: SUBCUTANEOUS AS NEEDED
  29. PHENOBARBITAL TAB [Concomitant]
     Dosage: 20 MG/5 ML

REACTIONS (3)
  - DROOLING [None]
  - DRUG INEFFECTIVE [None]
  - VOMITING [None]
